FAERS Safety Report 7808751-3 (Version None)
Quarter: 2011Q4

REPORT INFORMATION
  Report Type: 
  Country: None (occurrence: None)
  Receive Date: 20111012
  Receipt Date: 20111007
  Transmission Date: 20120403
  Serious: Yes (Other)
  Sender: FDA-Public Use
  Company Number: US-TEVA-304074USA

PATIENT
  Sex: Female

DRUGS (3)
  1. CLARAVIS [Suspect]
     Dosage: 40 MILLIGRAM;
     Route: 048
     Dates: start: 20110407, end: 20110831
  2. LEVONORGESTREL [Concomitant]
     Indication: CONTRACEPTION
     Dosage: IUD
     Route: 015
  3. CHORIONIC GONADOTROPIN [Concomitant]

REACTIONS (1)
  - UNINTENDED PREGNANCY [None]
